FAERS Safety Report 20865146 (Version 1)
Quarter: 2022Q2

REPORT INFORMATION
  Report Type: Spontaneous
  Country: CA (occurrence: CA)
  Receive Date: 20220524
  Receipt Date: 20220524
  Transmission Date: 20220721
  Serious: Yes (Hospitalization)
  Sender: FDA-Public Use
  Company Number: CA-BAUSCH-BL-2022-012269

PATIENT
  Age: 72 Year
  Sex: Male
  Weight: 100 kg

DRUGS (9)
  1. FLUOROURACIL [Suspect]
     Active Substance: FLUOROURACIL
     Indication: Colon cancer metastatic
     Route: 065
  2. LEUCOVORIN [Suspect]
     Active Substance: LEUCOVORIN
     Indication: Colon cancer metastatic
     Route: 065
  3. IRINOTECAN HYDROCHLORIDE [Suspect]
     Active Substance: IRINOTECAN HYDROCHLORIDE
     Indication: Colon cancer metastatic
     Dosage: SOLUTION INTRAVENOUS
     Route: 065
  4. ATROPINE [Concomitant]
     Active Substance: ATROPINE
     Indication: Product used for unknown indication
  5. DEXAMETHASONE [Concomitant]
     Active Substance: DEXAMETHASONE
     Indication: Product used for unknown indication
     Dosage: LIQUID INTRA- ARTICULAR
     Route: 065
  6. LOPERAMIDE [Concomitant]
     Active Substance: LOPERAMIDE
     Indication: Product used for unknown indication
  7. LORAZEPAM [Concomitant]
     Active Substance: LORAZEPAM
     Indication: Product used for unknown indication
  8. ONDANSETRON [Concomitant]
     Active Substance: ONDANSETRON
     Indication: Product used for unknown indication
  9. PROCHLORPERAZINE [Concomitant]
     Active Substance: PROCHLORPERAZINE
     Indication: Product used for unknown indication

REACTIONS (2)
  - Febrile neutropenia [Recovered/Resolved]
  - Clostridium difficile colitis [Recovered/Resolved]
